FAERS Safety Report 10067841 (Version 2)
Quarter: 2014Q2

REPORT INFORMATION
  Report Type: Spontaneous
  Country: US (occurrence: None)
  Receive Date: 20140407
  Receipt Date: 20140528
  Transmission Date: 20141212
  Serious: Yes (Other)
  Sender: FDA-Public Use
  Company Number: A1067847A

PATIENT
  Age: 60 Year
  Sex: Female

DRUGS (1)
  1. SODIUM FLUORIDE + POTASSIUM NITRATE TOOTHPASTE (SODIUM FLUORIDE + POTASSIUM) [Suspect]
     Indication: SENSITIVITY OF TEETH
     Route: 004
     Dates: start: 20140130, end: 201403

REACTIONS (12)
  - Lower respiratory tract infection [None]
  - Viral infection [None]
  - Hypersensitivity [None]
  - Oropharyngeal pain [None]
  - Pharyngeal oedema [None]
  - Laryngitis [None]
  - Dyspnoea [None]
  - Speech disorder [None]
  - Cough [None]
  - Pharyngeal erythema [None]
  - Throat tightness [None]
  - Dysphagia [None]
